FAERS Safety Report 17162388 (Version 3)
Quarter: 2020Q2

REPORT INFORMATION
  Report Type: Spontaneous
  Country: US (occurrence: US)
  Receive Date: 20191217
  Receipt Date: 20200521
  Transmission Date: 20200713
  Serious: Yes (Other)
  Sender: FDA-Public Use
  Company Number: US-GILEAD-2019-0442855

PATIENT
  Age: 51 Year
  Sex: Male

DRUGS (32)
  1. AMOXI-CLAV [Concomitant]
     Active Substance: AMOXICILLIN\CLAVULANATE POTASSIUM
  2. ALBUTEROL HFA [Concomitant]
     Active Substance: ALBUTEROL SULFATE
  3. FLUOCINONIDE. [Concomitant]
     Active Substance: FLUOCINONIDE
  4. LORAZEPAM. [Concomitant]
     Active Substance: LORAZEPAM
  5. RANITIDINE. [Concomitant]
     Active Substance: RANITIDINE
  6. ATRIPLA [Suspect]
     Active Substance: EFAVIRENZ\EMTRICITABINE\TENOFOVIR DISOPROXIL FUMARATE
     Indication: HIV INFECTION
     Dosage: 1 DOSAGE FORM, QD
     Route: 048
     Dates: start: 20120420, end: 20180802
  7. BIKTARVY [Concomitant]
     Active Substance: BICTEGRAVIR SODIUM\EMTRICITABINE\TENOFOVIR ALAFENAMIDE FUMARATE
  8. HYDROCODONE BITARTRATE AND ACETAMINOPHEN [Concomitant]
     Active Substance: ACETAMINOPHEN\HYDROCODONE BITARTRATE
  9. FENTANYL. [Concomitant]
     Active Substance: FENTANYL
  10. KEFLEX [Concomitant]
     Active Substance: CEPHALEXIN
  11. VIREAD [Suspect]
     Active Substance: TENOFOVIR DISOPROXIL FUMARATE
     Indication: HIV INFECTION
     Route: 065
  12. LOSARTAN. [Concomitant]
     Active Substance: LOSARTAN
  13. PANTOPRAZOLE [Concomitant]
     Active Substance: PANTOPRAZOLE
  14. DEXTROAMPHETAMINE [DEXAMFETAMINE] [Concomitant]
     Active Substance: DEXTROAMPHETAMINE
  15. OMEGA 3 ACID ETHYL ESTERS [Concomitant]
     Active Substance: OMEGA-3-ACID ETHYL ESTERS
  16. CALCIUM [Concomitant]
     Active Substance: CALCIUM
  17. SERTRALINE [Concomitant]
     Active Substance: SERTRALINE HYDROCHLORIDE
  18. BUPROPION. [Concomitant]
     Active Substance: BUPROPION
  19. ADDERALL [Concomitant]
     Active Substance: AMPHETAMINE ASPARTATE\AMPHETAMINE SULFATE\DEXTROAMPHETAMINE SACCHARATE\DEXTROAMPHETAMINE SULFATE
  20. MIDAZOLAM. [Concomitant]
     Active Substance: MIDAZOLAM
  21. BACTRIM DS [Concomitant]
     Active Substance: SULFAMETHOXAZOLE\TRIMETHOPRIM
  22. MURO 128 [Concomitant]
     Active Substance: SODIUM CHLORIDE
  23. VENLAFAXINE [Concomitant]
     Active Substance: VENLAFAXINE HYDROCHLORIDE
  24. GLUCOSAMINE JOINT COMPLEX [Concomitant]
  25. MULTIVITAMIN AND MINERAL [Concomitant]
  26. CHOLECALCIFEROL [Concomitant]
     Active Substance: CHOLECALCIFEROL
  27. REVATIO [Concomitant]
     Active Substance: SILDENAFIL CITRATE
  28. MIRTAZAPINE. [Concomitant]
     Active Substance: MIRTAZAPINE
  29. IBUPROFEN. [Concomitant]
     Active Substance: IBUPROFEN
  30. NAPROXEN. [Concomitant]
     Active Substance: NAPROXEN
  31. OMEPRAZOLE. [Concomitant]
     Active Substance: OMEPRAZOLE
  32. GENVOYA [Concomitant]
     Active Substance: COBICISTAT\ELVITEGRAVIR\EMTRICITABINE\TENOFOVIR ALAFENAMIDE FUMARATE
     Indication: HIV INFECTION
     Dosage: 1 DOSAGE FORM, QD
     Route: 048
     Dates: start: 2018

REACTIONS (11)
  - Economic problem [Unknown]
  - Bone loss [Not Recovered/Not Resolved]
  - Osteopenia [Not Recovered/Not Resolved]
  - Pain [Unknown]
  - Anxiety [Unknown]
  - Glomerular filtration rate decreased [Unknown]
  - Anhedonia [Unknown]
  - Bone density decreased [Unknown]
  - Chronic kidney disease [Not Recovered/Not Resolved]
  - Renal failure [Unknown]
  - Emotional distress [Unknown]

NARRATIVE: CASE EVENT DATE: 20130107
